FAERS Safety Report 13820256 (Version 1)
Quarter: 2017Q3

REPORT INFORMATION
  Report Type: Spontaneous
  Country: US (occurrence: US)
  Receive Date: 20170801
  Receipt Date: 20170801
  Transmission Date: 20171127
  Serious: No
  Sender: FDA-Public Use
  Company Number: US-ASTRAZENECA-2017SE65430

PATIENT
  Age: 28642 Day
  Sex: Female
  Weight: 54.4 kg

DRUGS (4)
  1. ARIMIDEX [Suspect]
     Active Substance: ANASTROZOLE
     Indication: ENDOMETRIAL CANCER STAGE III
     Route: 048
     Dates: start: 20170725
  2. ESTRING [Concomitant]
     Active Substance: ESTRADIOL
  3. FISH OIL [Concomitant]
     Active Substance: FISH OIL
  4. TAMOXIFEN [Suspect]
     Active Substance: TAMOXIFEN
     Indication: ENDOMETRIAL CANCER STAGE III
     Route: 048
     Dates: start: 201705

REACTIONS (7)
  - Off label use [Unknown]
  - Asthenia [Unknown]
  - Vaginal disorder [Unknown]
  - Product quality issue [Unknown]
  - Hot flush [Unknown]
  - Product use in unapproved indication [Unknown]
  - Product container seal issue [None]
